FAERS Safety Report 24244199 (Version 2)
Quarter: 2024Q3

REPORT INFORMATION
  Report Type: Spontaneous
  Country: JP (occurrence: JP)
  Receive Date: 20240823
  Receipt Date: 20240919
  Transmission Date: 20241017
  Serious: Yes (Hospitalization)
  Sender: JOHNSON AND JOHNSON
  Company Number: JP-MLMSERVICE-20240807-PI155191-00285-1

PATIENT
  Age: 8 Decade
  Sex: Male

DRUGS (16)
  1. RISPERDAL [Interacting]
     Active Substance: RISPERIDONE
     Indication: Product used for unknown indication
     Route: 048
  2. RISPERIDONE [Suspect]
     Active Substance: RISPERIDONE
     Indication: Product used for unknown indication
     Route: 048
  3. AMLODIPINE [Interacting]
     Active Substance: AMLODIPINE BESYLATE
     Indication: Product used for unknown indication
     Route: 065
  4. VONOPRAZAN [Interacting]
     Active Substance: VONOPRAZAN
     Indication: Product used for unknown indication
     Route: 065
  5. STALEVO [Interacting]
     Active Substance: CARBIDOPA\ENTACAPONE\LEVODOPA
     Indication: Product used for unknown indication
     Dosage: LEVODOPA 600 MG/DAY, ENTAKAPON 600 MG/DAY
     Route: 065
  6. STALEVO [Interacting]
     Active Substance: CARBIDOPA\ENTACAPONE\LEVODOPA
     Dosage: LEVODOPA 1000 MG/DAY, ENTAKAPON 1000 MG/DAY
     Route: 065
  7. SENNOSIDES [Interacting]
     Active Substance: SENNOSIDES
     Indication: Product used for unknown indication
     Route: 065
  8. ELOBIXIBAT [Interacting]
     Active Substance: ELOBIXIBAT
     Indication: Product used for unknown indication
     Route: 065
  9. LUBIPROSTONE [Interacting]
     Active Substance: LUBIPROSTONE
     Indication: Product used for unknown indication
     Route: 065
  10. FENOFIBRATE [Interacting]
     Active Substance: FENOFIBRATE
     Indication: Product used for unknown indication
     Route: 065
  11. ISTRADEFYLLINE [Interacting]
     Active Substance: ISTRADEFYLLINE
     Indication: Product used for unknown indication
     Route: 065
  12. RASAGILINE [Interacting]
     Active Substance: RASAGILINE\RASAGILINE MESYLATE
     Indication: Product used for unknown indication
     Route: 065
  13. DROXIDOPA [Interacting]
     Active Substance: DROXIDOPA
     Indication: Orthostatic hypotension
     Route: 065
  14. MOSAPRIDE [Interacting]
     Active Substance: MOSAPRIDE
     Indication: Product used for unknown indication
     Route: 065
  15. AMANTADINE [Interacting]
     Active Substance: AMANTADINE
     Indication: Orthostatic hypotension
     Route: 065
  16. MAGNESIUM OXIDE [Suspect]
     Active Substance: MAGNESIUM OXIDE
     Indication: Product used for unknown indication
     Route: 065

REACTIONS (4)
  - Toxicity to various agents [Recovering/Resolving]
  - Epilepsy [Recovered/Resolved]
  - Delirium [Recovered/Resolved]
  - Drug interaction [Recovering/Resolving]
